FAERS Safety Report 9994113 (Version 2)
Quarter: 2014Q1

REPORT INFORMATION
  Report Type: Report from Study
  Country: US (occurrence: US)
  Receive Date: 20140310
  Receipt Date: 20140310
  Transmission Date: 20141002
  Serious: Yes (Other)
  Sender: FDA-Public Use
  Company Number: US-ABBVIE-14P-163-1204402-00

PATIENT
  Age: 47 Year
  Sex: Female

DRUGS (15)
  1. HUMIRA [Suspect]
     Indication: RHEUMATOID ARTHRITIS
     Dates: start: 200410
  2. HUMIRA [Suspect]
  3. HUMIRA [Suspect]
     Indication: RHEUMATOID ARTHRITIS
     Dates: start: 2010
  4. LISINOPRIL HCTZ [Concomitant]
     Indication: HYPERTENSION
     Dosage: 10/12.5 MG DAILY
  5. HYDROCORTISONE [Concomitant]
     Indication: ADDISON^S DISEASE
     Dosage: 20 MG EVERY AM AND 15 MG EVERY PM
  6. HYDROCORTISONE [Concomitant]
     Indication: DRUG THERAPY
  7. SYNTHROID [Concomitant]
     Indication: HYPOTHYROIDISM
  8. PREVACID [Concomitant]
     Indication: GASTROOESOPHAGEAL REFLUX DISEASE
  9. LIPITOR [Concomitant]
     Indication: BLOOD CHOLESTEROL INCREASED
  10. ESTRADIOL [Concomitant]
     Indication: HORMONE REPLACEMENT THERAPY
  11. NAPROXYN [Concomitant]
     Indication: RHEUMATOID ARTHRITIS
  12. ACTONEL [Concomitant]
     Indication: BONE DISORDER
  13. VIT D [Concomitant]
     Indication: PRODUCT USED FOR UNKNOWN INDICATION
  14. CALTRATE [Concomitant]
     Indication: PRODUCT USED FOR UNKNOWN INDICATION
     Dosage: DAILY
  15. MULTIVITAMINS [Concomitant]
     Indication: PRODUCT USED FOR UNKNOWN INDICATION
     Dosage: DAILY

REACTIONS (14)
  - Joint injury [Unknown]
  - Rheumatoid arthritis [Unknown]
  - Knee arthroplasty [Unknown]
  - Rheumatoid arthritis [Unknown]
  - Musculoskeletal stiffness [Recovering/Resolving]
  - Pain [Recovering/Resolving]
  - Drug ineffective [Recovering/Resolving]
  - Injection site pain [Unknown]
  - Injection site pain [Unknown]
  - Injection site pain [Unknown]
  - Pain [Unknown]
  - Injection site pain [Unknown]
  - Nodule [Unknown]
  - Injection site pain [Unknown]
